FAERS Safety Report 14332000 (Version 1)
Quarter: 2017Q4

REPORT INFORMATION
  Report Type: Spontaneous
  Country: US (occurrence: US)
  Receive Date: 20171228
  Receipt Date: 20171228
  Transmission Date: 20180321
  Serious: Yes (Death)
  Sender: FDA-Public Use
  Company Number: US-JNJFOC-20171233663

PATIENT
  Sex: Female

DRUGS (14)
  1. VALACYCLOVIR [Concomitant]
     Active Substance: VALACYCLOVIR HYDROCHLORIDE
     Route: 065
  2. STOOL SOFTENER (DOCUSATE) [Concomitant]
     Active Substance: DOCUSATE
  3. FLUTICASONE. [Concomitant]
     Active Substance: FLUTICASONE
  4. PROCHLORPERAZINE. [Concomitant]
     Active Substance: PROCHLORPERAZINE
  5. FUROSEMIDE. [Concomitant]
     Active Substance: FUROSEMIDE
  6. VYVANSE [Concomitant]
     Active Substance: LISDEXAMFETAMINE DIMESYLATE
  7. OMEPRAZOLE. [Concomitant]
     Active Substance: OMEPRAZOLE
  8. IMBRUVICA [Suspect]
     Active Substance: IBRUTINIB
     Indication: PRODUCT USED FOR UNKNOWN INDICATION
     Route: 048
     Dates: start: 20161005
  9. SINGULAIR [Concomitant]
     Active Substance: MONTELUKAST SODIUM
  10. FLECAINIDE [Concomitant]
     Active Substance: FLECAINIDE
  11. GABAPENTIN. [Concomitant]
     Active Substance: GABAPENTIN
  12. TYLENOL [Concomitant]
     Active Substance: ACETAMINOPHEN
  13. XANAX [Concomitant]
     Active Substance: ALPRAZOLAM
  14. IBUPROFEN. [Concomitant]
     Active Substance: IBUPROFEN

REACTIONS (1)
  - Death [Fatal]
